FAERS Safety Report 7408228-3 (Version None)
Quarter: 2011Q2

REPORT INFORMATION
  Report Type: 
  Country: None (occurrence: None)
  Receive Date: 20110412
  Receipt Date: 20110125
  Transmission Date: 20111010
  Serious: No
  Sender: FDA-Public Use
  Company Number: A0909141A

PATIENT
  Age: 63 Year
  Sex: Male

DRUGS (5)
  1. LIPITOR [Concomitant]
  2. WELLBUTRIN [Concomitant]
  3. HYDROCHLOROTHIAZIDE [Concomitant]
  4. JALYN [Suspect]
     Dosage: 1CAPL PER DAY
     Route: 048
     Dates: start: 20110113
  5. ATACAND [Concomitant]

REACTIONS (1)
  - EJACULATION DISORDER [None]
